FAERS Safety Report 15864481 (Version 1)
Quarter: 2019Q1

REPORT INFORMATION
  Report Type: Spontaneous
  Country: DE (occurrence: DE)
  Receive Date: 20190124
  Receipt Date: 20190124
  Transmission Date: 20190417
  Serious: Yes (Other)
  Sender: FDA-Public Use
  Company Number: DE-JNJFOC-20190125374

PATIENT
  Age: 36 Year
  Sex: Female

DRUGS (2)
  1. LORAZEPAM. [Concomitant]
     Active Substance: LORAZEPAM
     Route: 065
  2. HALOPERIDOL. [Suspect]
     Active Substance: HALOPERIDOL
     Indication: GASTROINTESTINAL MOTILITY DISORDER
     Route: 065

REACTIONS (3)
  - Off label use [Unknown]
  - Catatonia [Recovering/Resolving]
  - Product use in unapproved indication [Unknown]
